FAERS Safety Report 14307885 (Version 4)
Quarter: 2019Q2

REPORT INFORMATION
  Report Type: Report from Study
  Country: US (occurrence: US)
  Receive Date: 20171220
  Receipt Date: 20190620
  Transmission Date: 20190711
  Serious: Yes (Other)
  Sender: FDA-Public Use
  Company Number: US-ROCHE-2044163

PATIENT
  Age: 69 Year
  Sex: Male
  Weight: 79.45 kg

DRUGS (3)
  1. OCREVUS [Suspect]
     Active Substance: OCRELIZUMAB
     Indication: RELAPSING MULTIPLE SCLEROSIS
  2. OCREVUS [Suspect]
     Active Substance: OCRELIZUMAB
     Indication: MULTIPLE SCLEROSIS
     Route: 042
     Dates: start: 20181128
  3. OCREVUS [Suspect]
     Active Substance: OCRELIZUMAB
     Indication: RELAPSING-REMITTING MULTIPLE SCLEROSIS
     Dosage: JUN-2018 OR JULY-2018
     Route: 042
     Dates: start: 201707

REACTIONS (12)
  - Blindness [Unknown]
  - Muscular weakness [Unknown]
  - Blindness unilateral [Not Recovered/Not Resolved]
  - General physical health deterioration [Unknown]
  - Neuralgia [Recovered/Resolved]
  - Balance disorder [Unknown]
  - Urticaria [Recovered/Resolved]
  - Drug ineffective [Unknown]
  - Upper respiratory tract infection [Recovered/Resolved]
  - Cerebral disorder [Unknown]
  - Pruritus [Recovered/Resolved]
  - Toothache [Recovered/Resolved]

NARRATIVE: CASE EVENT DATE: 201711
